FAERS Safety Report 7427170-5 (Version None)
Quarter: 2011Q2

REPORT INFORMATION
  Report Type: 
  Country: None (occurrence: None)
  Receive Date: 20110420
  Receipt Date: 20110405
  Transmission Date: 20111010
  Serious: Yes (Hospitalization)
  Sender: FDA-Public Use
  Company Number: US-JNJFOC-20110403100

PATIENT
  Sex: Male
  Weight: 78.93 kg

DRUGS (4)
  1. PALIPERIDONE PALMITATE [Suspect]
     Indication: SCHIZOPHRENIA
  2. RISPERDAL [Suspect]
     Indication: SCHIZOPHRENIA
     Route: 048
  3. PALIPERIDONE PALMITATE [Suspect]
  4. RISPERDAL [Suspect]
     Route: 048

REACTIONS (1)
  - SCHIZOPHRENIA [None]
